FAERS Safety Report 9610634 (Version 4)
Quarter: 2014Q2

REPORT INFORMATION
  Report Type: Report from Study
  Country: US (occurrence: US)
  Receive Date: 20131009
  Receipt Date: 20140503
  Transmission Date: 20141212
  Serious: Yes (Death, Life-Threatening, Hospitalization, Other)
  Sender: FDA-Public Use
  Company Number: PHHO2013US013026

PATIENT
  Age: 57 Year
  Sex: Male
  Weight: 82.99 kg

DRUGS (2)
  1. ACZ885 [Suspect]
     Indication: CARDIOVASCULAR EVENT PROPHYLAXIS
     Dosage: 300 MG, UNK
     Route: 058
     Dates: start: 20110818, end: 20130808
  2. ASPIRIN [Concomitant]

REACTIONS (1)
  - Oesophageal cancer metastatic [Fatal]
